FAERS Safety Report 19290260 (Version 1)
Quarter: 2021Q2

REPORT INFORMATION
  Report Type: Spontaneous
  Country: US (occurrence: US)
  Receive Date: 20210522
  Receipt Date: 20210522
  Transmission Date: 20210717
  Serious: Yes (Hospitalization, Other)
  Sender: FDA-Public Use
  Company Number: US-ALXN-A202105893

PATIENT
  Age: 5 Month
  Sex: Male

DRUGS (1)
  1. STRENSIQ [Suspect]
     Active Substance: ASFOTASE ALFA
     Indication: HYPOPHOSPHATASIA
     Dosage: UNK
     Route: 065
     Dates: start: 202103

REACTIONS (4)
  - Craniosynostosis [Unknown]
  - Hypercalcaemia [Unknown]
  - Blood alkaline phosphatase decreased [Unknown]
  - Fontanelle bulging [Not Recovered/Not Resolved]
